FAERS Safety Report 7310312-X (Version None)
Quarter: 2011Q1

REPORT INFORMATION
  Report Type: 
  Country: None (occurrence: None)
  Receive Date: 20110224
  Receipt Date: 20110128
  Transmission Date: 20110831
  Serious: No
  Sender: FDA-Public Use
  Company Number: US-B.I. PHARMACEUTICALS,INC./RIDGEFIELD-2010-BP-15358BP

PATIENT
  Age: 70 Year
  Sex: Male

DRUGS (15)
  1. PRADAXA [Suspect]
     Indication: DRUG THERAPY CHANGED
  2. FUROSEMIDE [Concomitant]
     Dosage: 80 MG
  3. HYDROCYAPAP [Concomitant]
  4. ZOLPIDEM [Concomitant]
     Dosage: 10 MG
  5. LOVASTATIN [Concomitant]
     Dosage: 40 MG
  6. PRADAXA [Suspect]
     Indication: ATRIAL FIBRILLATION
     Dosage: 300 MG
     Route: 048
     Dates: start: 20101213, end: 20110121
  7. DOXOZOSIN [Concomitant]
     Dosage: 4 MG
  8. SOTALOL HCL [Concomitant]
     Dosage: 75 MG
  9. BENICAR [Concomitant]
     Dosage: 20 MG
  10. PREVACID [Concomitant]
     Indication: GASTROOESOPHAGEAL REFLUX DISEASE
     Dosage: 20 MG
  11. SLEEPING PILLS [Concomitant]
  12. CETIRIZINE HCL [Concomitant]
     Dosage: 10 MG
  13. LEVOTHROXIN [Concomitant]
     Dosage: 75 MG
  14. ISOSORB MONO ER [Concomitant]
     Dosage: 60 MG
  15. ASPIRIN [Concomitant]
     Dosage: 81 MG

REACTIONS (6)
  - INSOMNIA [None]
  - DYSPEPSIA [None]
  - GASTROINTESTINAL DISORDER [None]
  - GASTROOESOPHAGEAL REFLUX DISEASE [None]
  - DRUG INTOLERANCE [None]
  - EATING DISORDER [None]
